FAERS Safety Report 5191424-6 (Version None)
Quarter: 2006Q4

REPORT INFORMATION
  Report Type: 
  Country: None (occurrence: None)
  Receive Date: 20061226
  Receipt Date: 20061216
  Transmission Date: 20070319
  Serious: Yes (Other)
  Sender: FDA-Public Use
  Company Number: US-ROCHE-475789

PATIENT
  Age: 54 Year
  Sex: Female

DRUGS (2)
  1. PEGASYS [Suspect]
     Route: 065
     Dates: start: 20060801
  2. COPEGUS [Suspect]
     Route: 065
     Dates: start: 20060801

REACTIONS (3)
  - BLOOD PRESSURE DECREASED [None]
  - MIGRAINE [None]
  - PLATELET COUNT DECREASED [None]
